FAERS Safety Report 23233399 (Version 1)
Quarter: 2023Q4

REPORT INFORMATION
  Report Type: Spontaneous
  Country: IT (occurrence: IT)
  Receive Date: 20231128
  Receipt Date: 20231128
  Transmission Date: 20240110
  Serious: Yes (Other)
  Sender: FDA-Public Use
  Company Number: IT-STRIDES ARCOLAB LIMITED-2023SP017548

PATIENT
  Age: 51 Year
  Sex: Female

DRUGS (1)
  1. PREDNISOLONE [Suspect]
     Active Substance: PREDNISOLONE
     Indication: Granulomatosis with polyangiitis
     Dosage: UNK
     Route: 065

REACTIONS (1)
  - Eosinophilic granulomatosis with polyangiitis [Unknown]
